FAERS Safety Report 4432197-1 (Version None)
Quarter: 2004Q3

REPORT INFORMATION
  Report Type: 
  Country: None (occurrence: None)
  Receive Date: 20040819
  Receipt Date: 20040625
  Transmission Date: 20050211
  Serious: Yes (Other)
  Sender: FDA-Public Use
  Company Number: USA-2002-006098

PATIENT
  Age: 35 Year
  Sex: Female
  Weight: 49.1 kg

DRUGS (1)
  1. YASMIN [Suspect]
     Indication: PREMENSTRUAL SYNDROME
     Dosage: 2 MG DRSP/20 MCG EE DAILY, ORAL
     Route: 048
     Dates: start: 20020624, end: 20020926

REACTIONS (2)
  - CARCINOMA IN SITU [None]
  - CERVICAL DYSPLASIA [None]
